FAERS Safety Report 18271140 (Version 1)
Quarter: 2020Q3

REPORT INFORMATION
  Report Type: Spontaneous
  Country: US (occurrence: US)
  Receive Date: 20200916
  Receipt Date: 20200916
  Transmission Date: 20201103
  Serious: No
  Sender: FDA-Public Use
  Company Number: US-ITALFARMACO SPA-2090772

PATIENT
  Age: 68 Year
  Sex: Female

DRUGS (8)
  1. MIRTAZAPINE. [Concomitant]
     Active Substance: MIRTAZAPINE
  2. MAGNESIUM OXIDE. [Concomitant]
     Active Substance: MAGNESIUM OXIDE
  3. TIGLUTIK [Suspect]
     Active Substance: RILUZOLE
     Indication: AMYOTROPHIC LATERAL SCLEROSIS
     Route: 048
     Dates: start: 20200730
  4. CARVEDILOL. [Concomitant]
     Active Substance: CARVEDILOL
  5. MOTRIN [Concomitant]
     Active Substance: IBUPROFEN
  6. RADICAVA [Concomitant]
     Active Substance: EDARAVONE
  7. TYLENOL [Concomitant]
     Active Substance: ACETAMINOPHEN
  8. PANTOPRAZOLE SODIUM. [Concomitant]
     Active Substance: PANTOPRAZOLE SODIUM

REACTIONS (1)
  - Abdominal pain [Not Recovered/Not Resolved]
